FAERS Safety Report 7230334-7 (Version None)
Quarter: 2011Q1

REPORT INFORMATION
  Report Type: 
  Country: None (occurrence: None)
  Receive Date: 20110118
  Receipt Date: 20110113
  Transmission Date: 20110831
  Serious: No
  Sender: FDA-Public Use
  Company Number: US-PFIZER INC-2011009386

PATIENT
  Sex: Female
  Weight: 62.1 kg

DRUGS (3)
  1. METOPROLOL [Interacting]
     Indication: HYPERTENSION
     Dosage: 20 MG, DAILY
     Route: 048
     Dates: start: 20090101
  2. LIPITOR [Suspect]
     Indication: BLOOD CHOLESTEROL INCREASED
     Dosage: 40 MG, DAILY
     Route: 048
     Dates: end: 20101226
  3. MICARDIS [Concomitant]
     Dosage: UNK

REACTIONS (3)
  - BACK PAIN [None]
  - TREMOR [None]
  - DRUG INTERACTION [None]
